FAERS Safety Report 16654237 (Version 1)
Quarter: 2019Q3

REPORT INFORMATION
  Report Type: Other
  Country: US (occurrence: US)
  Receive Date: 20190731
  Receipt Date: 20190731
  Transmission Date: 20191004
  Serious: Yes (Life-Threatening)
  Sender: FDA-Public Use
  Company Number: US-VITRUVIAS THERAPEUTICS-2071652

PATIENT
  Age: 55 Year
  Sex: Male
  Weight: 85 kg

DRUGS (12)
  1. FENTANYL. [Concomitant]
     Active Substance: FENTANYL
     Route: 042
  2. VANCOMYCIN HYDROCHLORIDE. [Concomitant]
     Active Substance: VANCOMYCIN HYDROCHLORIDE
     Route: 042
  3. CANDESARTAN. [Concomitant]
     Active Substance: CANDESARTAN
     Route: 048
  4. ROSUVASTATIN. [Concomitant]
     Active Substance: ROSUVASTATIN
     Route: 048
  5. ASPIRIN. [Concomitant]
     Active Substance: ASPIRIN
     Route: 048
  6. LIDOCAINE. [Suspect]
     Active Substance: LIDOCAINE
     Route: 042
  7. ATAZANAVIR. [Concomitant]
     Active Substance: ATAZANAVIR
     Route: 048
  8. ABACAVIR AND LAMIVUDINE [Concomitant]
     Active Substance: ABACAVIR SULFATE\LAMIVUDINE
     Route: 048
  9. RITONAVIR. [Concomitant]
     Active Substance: RITONAVIR
     Route: 048
  10. METOPROLOL SUCCINATE. [Concomitant]
     Active Substance: METOPROLOL SUCCINATE
     Route: 048
  11. CIPROFLOXACIN. [Concomitant]
     Active Substance: CIPROFLOXACIN
     Route: 042
  12. HEPARIN [Concomitant]
     Active Substance: HEPARIN SODIUM
     Route: 058

REACTIONS (1)
  - Toxicity to various agents [Recovered/Resolved]
